FAERS Safety Report 14768114 (Version 2)
Quarter: 2018Q2

REPORT INFORMATION
  Report Type: Spontaneous
  Country: US (occurrence: US)
  Receive Date: 20180417
  Receipt Date: 20180418
  Transmission Date: 20180711
  Serious: Yes (Death, Other)
  Sender: FDA-Public Use
  Company Number: US-CIPLA LTD.-2018US15754

PATIENT

DRUGS (6)
  1. CARBOPLATIN. [Suspect]
     Active Substance: CARBOPLATIN
     Indication: METASTASES TO LYMPH NODES
     Dosage: AUC OF 2 GIVEN ON DAYS 1, 8, AND 15 (28-DAY CYCLE), CYCLICAL
     Route: 042
     Dates: start: 201003, end: 201005
  2. CAPECITABINE. [Suspect]
     Active Substance: CAPECITABINE
     Indication: METASTASES TO LYMPH NODES
     Dosage: 1500MG, Q12H THAT FOLLOWED A 2-WEEK ON/1-WEEK
     Route: 048
     Dates: start: 201202
  3. CAPECITABINE. [Suspect]
     Active Substance: CAPECITABINE
     Dosage: 1000 MG, UNK
     Route: 048
  4. PACLITAXEL. [Suspect]
     Active Substance: PACLITAXEL
     Indication: METASTASES TO LYMPH NODES
     Dosage: 45 MG/M2, ON DAYS 1, 8, AND 15 (28-DAY CYCLE), CYCLICAL
     Route: 065
     Dates: start: 201003, end: 201005
  5. ACTINOMYCIN D [Suspect]
     Active Substance: DACTINOMYCIN
     Indication: ECCRINE CARCINOMA
     Dosage: UNK
     Route: 065
  6. MELPHALAN. [Suspect]
     Active Substance: MELPHALAN
     Indication: ECCRINE CARCINOMA
     Dosage: UNK
     Route: 065

REACTIONS (10)
  - Metastases to central nervous system [Unknown]
  - Death [Fatal]
  - Metastases to lymph nodes [Unknown]
  - Metastases to skin [Unknown]
  - Lymphadenopathy [Unknown]
  - Metastases to thorax [Unknown]
  - Disease recurrence [Unknown]
  - Adrenomegaly [Unknown]
  - Palmar-plantar erythrodysaesthesia syndrome [Unknown]
  - Metastases to lung [Unknown]
